FAERS Safety Report 4847965-1 (Version None)
Quarter: 2005Q4

REPORT INFORMATION
  Report Type: 
  Country: None (occurrence: None)
  Receive Date: 20051205
  Receipt Date: 20051205
  Transmission Date: 20060501
  Serious: Yes (Life-Threatening)
  Sender: FDA-Public Use
  Company Number: None

PATIENT
  Sex: Male
  Weight: 74.3899 kg

DRUGS (2)
  1. ERBITUX    100MG     IMCLONE [Suspect]
     Indication: COLON CANCER STAGE IV
     Dosage: 300MG   TODAY    IV DRIP
     Route: 041
     Dates: start: 20051129, end: 20051129
  2. ERBITUX    100MG     IMCLONE [Suspect]
     Indication: DISEASE PROGRESSION
     Dosage: 300MG   TODAY    IV DRIP
     Route: 041
     Dates: start: 20051129, end: 20051129

REACTIONS (6)
  - BLOOD PRESSURE IMMEASURABLE [None]
  - INFUSION RELATED REACTION [None]
  - LOSS OF CONSCIOUSNESS [None]
  - OXYGEN SATURATION IMMEASURABLE [None]
  - PRURITUS [None]
  - URTICARIA [None]
